FAERS Safety Report 5419064-1 (Version None)
Quarter: 2007Q3

REPORT INFORMATION
  Report Type: 
  Country: None (occurrence: None)
  Receive Date: 20070820
  Receipt Date: 20070810
  Transmission Date: 20080115
  Serious: Yes (Other)
  Sender: FDA-Public Use
  Company Number: PHBS2007JP13626

PATIENT

DRUGS (1)
  1. SLOW-K [Suspect]
     Route: 048

REACTIONS (1)
  - CHROMATURIA [None]
